FAERS Safety Report 23376949 (Version 1)
Quarter: 2024Q1

REPORT INFORMATION
  Report Type: Spontaneous
  Country: US (occurrence: US)
  Receive Date: 20240108
  Receipt Date: 20240108
  Transmission Date: 20240410
  Serious: Yes (Hospitalization, Other)
  Sender: FDA-Public Use
  Company Number: US-CIPLA LTD.-2023US08699

PATIENT

DRUGS (3)
  1. CALCIUM ACETATE [Suspect]
     Active Substance: CALCIUM ACETATE
     Indication: Product used for unknown indication
     Dosage: 1000 MG WITH MEALS, UNK
     Route: 048
  2. CALCITRIOL [Suspect]
     Active Substance: CALCITRIOL
     Indication: Hungry bone syndrome
     Dosage: 50000 IU, SINGLE ORAL DOSE
     Route: 048
  3. CALCITRIOL [Suspect]
     Active Substance: CALCITRIOL
     Indication: Prophylaxis
     Dosage: 0.5 MICROGRAM, BID (ORALLY WITH MEALS)
     Route: 048

REACTIONS (2)
  - Acute kidney injury [Recovering/Resolving]
  - Hypercalcaemia [Recovered/Resolved]
